FAERS Safety Report 15044613 (Version 1)
Quarter: 2018Q2

REPORT INFORMATION
  Report Type: Spontaneous
  Country: FR (occurrence: FR)
  Receive Date: 20180621
  Receipt Date: 20180621
  Transmission Date: 20180711
  Serious: Yes (Death, Life-Threatening)
  Sender: FDA-Public Use
  Company Number: FR-MYLANLABS-2018M1041575

PATIENT
  Age: 57 Year
  Sex: Male
  Weight: 75 kg

DRUGS (7)
  1. JAKAVI [Suspect]
     Active Substance: RUXOLITINIB
     Indication: SPLENOMEGALY
     Dosage: 4 DF, QD
     Route: 048
     Dates: start: 20160330, end: 20170423
  2. CIFLOX                             /00697201/ [Concomitant]
     Active Substance: CIPROFLOXACIN
     Indication: BONE MARROW FAILURE
     Dosage: 2 DF, QD
     Route: 042
     Dates: start: 20170507
  3. IDARUBICIN [Suspect]
     Active Substance: IDARUBICIN
     Indication: ACUTE MYELOID LEUKAEMIA
     Dosage: NON RENSEIGN?E
     Route: 042
  4. VANCOMYCINE                        /00314401/ [Concomitant]
     Active Substance: VANCOMYCIN
     Indication: BONE MARROW FAILURE
     Dosage: 2.5 G, QD
     Route: 042
     Dates: start: 20170507
  5. TAZOCILLINE [Concomitant]
     Active Substance: PIPERACILLIN SODIUM\TAZOBACTAM SODIUM
     Indication: BONE MARROW FAILURE
     Dosage: UNK
     Route: 042
  6. ARACYTINE [Suspect]
     Active Substance: CYTARABINE
     Indication: ACUTE MYELOID LEUKAEMIA
     Dosage: NON RENSEIGN?E
     Route: 042
  7. MERONEM [Concomitant]
     Active Substance: MEROPENEM
     Indication: BONE MARROW FAILURE
     Dosage: 3 G, QD
     Route: 042
     Dates: start: 20170507

REACTIONS (3)
  - Respiratory distress [Recovered/Resolved]
  - Bone marrow failure [Fatal]
  - Mucormycosis [Fatal]

NARRATIVE: CASE EVENT DATE: 20170428
